FAERS Safety Report 9410030 (Version 1)
Quarter: 2013Q3

REPORT INFORMATION
  Report Type: Spontaneous
  Country: RU (occurrence: RU)
  Receive Date: 20130719
  Receipt Date: 20130719
  Transmission Date: 20140515
  Serious: Yes (Death)
  Sender: FDA-Public Use
  Company Number: RU-ASTRAZENECA-2013SE52708

PATIENT
  Age: 69 Year
  Sex: Male

DRUGS (3)
  1. BRILINTA [Suspect]
     Indication: ACUTE CORONARY SYNDROME
     Route: 048
     Dates: start: 201305
  2. HEPARIN [Concomitant]
  3. PROTAMINE [Concomitant]

REACTIONS (2)
  - Death [Fatal]
  - Haemorrhage [Fatal]
